FAERS Safety Report 5703384-7 (Version None)
Quarter: 2008Q2

REPORT INFORMATION
  Report Type: 
  Country: None (occurrence: None)
  Receive Date: 20080411
  Receipt Date: 20080403
  Transmission Date: 20081010
  Serious: Yes (Other)
  Sender: FDA-Public Use
  Company Number: DK-BOEHRINGER INGELHEIM GMBH, GERMANY-2008-SW-00108DB

PATIENT
  Sex: Male
  Weight: 96 kg

DRUGS (3)
  1. SIFROL TAB. 0.18 MG [Suspect]
     Indication: MUSCLE SPASMS
     Route: 048
     Dates: start: 20060831
  2. SIFROL TAB. 0.18 MG [Suspect]
     Route: 048
  3. SIFROL TAB. 0.18 MG [Suspect]
     Route: 048
     Dates: end: 20061001

REACTIONS (10)
  - DAYDREAMING [None]
  - DYSARTHRIA [None]
  - HALLUCINATION [None]
  - HEPATIC ENZYME INCREASED [None]
  - LISTLESS [None]
  - NIGHTMARE [None]
  - PIGMENTATION DISORDER [None]
  - PSORIASIS [None]
  - SLEEP TALKING [None]
  - WEIGHT INCREASED [None]
